FAERS Safety Report 6198256-0 (Version None)
Quarter: 2009Q2

REPORT INFORMATION
  Report Type: 
  Country: None (occurrence: None)
  Receive Date: 20090519
  Receipt Date: 20090511
  Transmission Date: 20091009
  Serious: Yes (Other)
  Sender: FDA-Public Use
  Company Number: 2009S1000175

PATIENT
  Age: 72 Year
  Sex: Male
  Weight: 92.9874 kg

DRUGS (2)
  1. SORIATANE [Suspect]
     Indication: DERMATITIS
     Dosage: 10 MG; X1; PO
     Route: 048
     Dates: start: 20090416, end: 20090416
  2. LIPITOR [Concomitant]

REACTIONS (4)
  - DYSPNOEA [None]
  - ERYTHEMA [None]
  - OFF LABEL USE [None]
  - PULMONARY CONGESTION [None]
